FAERS Safety Report 4503582-4 (Version None)
Quarter: 2004Q4

REPORT INFORMATION
  Report Type: 
  Country: None (occurrence: None)
  Receive Date: 20041117
  Receipt Date: 20041007
  Transmission Date: 20050328
  Serious: Yes (Hospitalization)
  Sender: FDA-Public Use
  Company Number: PHBS2004JP13503

PATIENT
  Sex: Female

DRUGS (5)
  1. DIOVAN [Suspect]
     Indication: GLOMERULONEPHRITIS
     Dosage: 80 MG/DAY
     Route: 048
     Dates: start: 20030101
  2. EPOGEN [Suspect]
     Route: 048
     Dates: start: 20040101
  3. GASTER [Suspect]
     Route: 048
  4. AMLODIN [Concomitant]
     Route: 048
  5. LIPITOR [Concomitant]
     Route: 048

REACTIONS (2)
  - LIVER DISORDER [None]
  - PYREXIA [None]
